FAERS Safety Report 8876629 (Version 1)
Quarter: 2012Q4

REPORT INFORMATION
  Report Type: 
  Country: GB (occurrence: GB)
  Receive Date: 20121029
  Receipt Date: 20121029
  Transmission Date: 20130627
  Serious: Yes (Life-Threatening, Hospitalization)
  Sender: FDA-Public Use
  Company Number: PHHY2012GB096278

PATIENT
  Age: 72 Year
  Sex: Female
  Weight: 67 kg

DRUGS (10)
  1. OMEPRAZOLE [Suspect]
     Dates: start: 20120709
  2. FERROUS GLUCONATE [Concomitant]
     Dates: start: 20120118
  3. OLMESARTAN MEDOXOMIL [Concomitant]
     Dates: start: 20120709
  4. QUININE [Concomitant]
     Dates: start: 20120709
  5. CALCICHEW D3 [Concomitant]
     Dates: start: 20120709
  6. ASPIRIN [Concomitant]
     Dates: start: 20120709
  7. FUROSEMIDE [Concomitant]
     Dates: start: 20120709
  8. AMOXICILLIN [Concomitant]
     Dates: start: 20120814, end: 20120821
  9. AMOXICILLIN\CLAVULANATE POTASSIUM [Concomitant]
     Dates: start: 20120822, end: 20120829
  10. SALBUTAMOL [Concomitant]
     Dates: start: 20121002

REACTIONS (2)
  - Hypocalcaemia [Not Recovered/Not Resolved]
  - Hypomagnesaemia [Not Recovered/Not Resolved]
